FAERS Safety Report 10185745 (Version 2)
Quarter: 2014Q3

REPORT INFORMATION
  Report Type: Spontaneous
  Country: DE (occurrence: DE)
  Receive Date: 20140521
  Receipt Date: 20140702
  Transmission Date: 20150326
  Serious: Yes (Hospitalization)
  Sender: FDA-Public Use
  Company Number: PHHY2014DE061256

PATIENT
  Age: 81 Year
  Sex: Female
  Weight: 60 kg

DRUGS (14)
  1. DEKRISTOL [Concomitant]
     Active Substance: CHOLECALCIFEROL
     Indication: OSTEOPOROSIS
     Dosage: 20000 IU (EACH THURSDAY)
     Route: 048
  2. PANTOPRAZOLE [Concomitant]
     Active Substance: PANTOPRAZOLE SODIUM
     Dosage: 20 MG, QD
  3. RAMIPRIL. [Suspect]
     Active Substance: RAMIPRIL
     Dosage: UNK
  4. AMLODIPINE [Concomitant]
     Active Substance: AMLODIPINE BESYLATE
     Dosage: 10 MG, QD
  5. SPASMEX [Concomitant]
     Active Substance: TROSPIUM CHLORIDE
     Dosage: SPASMEX 15, BID
  6. ACLASTA [Suspect]
     Active Substance: ZOLEDRONIC ACID
     Indication: OSTEOPOROSIS POSTMENOPAUSAL
     Dosage: 5 MG, ONCE PER YEAR
     Route: 042
     Dates: start: 20140325
  7. IBU [Concomitant]
     Active Substance: IBUPROFEN
     Dosage: UNK, 600  (AS REQUIRED)
  8. NOVAMINSULFON [Concomitant]
     Active Substance: METAMIZOLE
     Dosage: 30 GTT, QID
  9. BIFITERAL [Concomitant]
     Active Substance: LACTULOSE
     Dosage: 10 ML, BID
  10. CARVEDILOL. [Concomitant]
     Active Substance: CARVEDILOL
     Dosage: 12.5 MG, QD
  11. L-THYROK [Concomitant]
     Dosage: 50 UG, QD
  12. L-THYROK [Concomitant]
     Dosage: 25 UG, QD
  13. AXURA [Concomitant]
     Active Substance: MEMANTINE HYDROCHLORIDE
     Dosage: 10 MG, QD
     Dates: start: 2013
  14. IBUHEXAL//IBUPROFEN [Concomitant]
     Dosage: 400 MG, BID

REACTIONS (20)
  - Depression [Not Recovered/Not Resolved]
  - Feeling abnormal [Unknown]
  - Apathy [Unknown]
  - Conduct disorder [Not Recovered/Not Resolved]
  - Hypertension [Unknown]
  - Febrile convulsion [Not Recovered/Not Resolved]
  - Gait disturbance [Not Recovered/Not Resolved]
  - Delirium [Unknown]
  - Rash pruritic [Unknown]
  - Radius fracture [Not Recovered/Not Resolved]
  - Dermatitis allergic [Unknown]
  - Hypertensive cardiomyopathy [Unknown]
  - Fall [Not Recovered/Not Resolved]
  - Excoriation [Unknown]
  - Influenza like illness [Unknown]
  - Body temperature increased [Unknown]
  - Disorientation [Unknown]
  - Confusional state [Unknown]
  - Hallucination [Unknown]
  - Urticaria [Recovered/Resolved]

NARRATIVE: CASE EVENT DATE: 201403
